FAERS Safety Report 10052066 (Version 1)
Quarter: 2014Q2

REPORT INFORMATION
  Report Type: Spontaneous
  Country: US (occurrence: US)
  Receive Date: 20140402
  Receipt Date: 20140402
  Transmission Date: 20141212
  Serious: Yes (Other)
  Sender: FDA-Public Use
  Company Number: US-BRISTOL-MYERS SQUIBB COMPANY-20548251

PATIENT
  Age: 4 Decade
  Sex: Female

DRUGS (2)
  1. ABILIFY TABS [Suspect]
     Indication: BIPOLAR DISORDER
  2. RISPERDAL [Suspect]
     Indication: BIPOLAR DISORDER
     Dosage: DECREASED AND ADDED 1MG OF RISPERDAL BACK

REACTIONS (2)
  - Mania [Recovered/Resolved]
  - Breast pain [Unknown]
